FAERS Safety Report 22353649 (Version 1)
Quarter: 2023Q2

REPORT INFORMATION
  Report Type: Spontaneous
  Country: US (occurrence: US)
  Receive Date: 20230523
  Receipt Date: 20230523
  Transmission Date: 20230722
  Serious: Yes (Death, Other)
  Sender: FDA-Public Use
  Company Number: US-CIPLA LTD.-2023US02681

PATIENT

DRUGS (1)
  1. CYCLOPHOSPHAMIDE [Suspect]
     Active Substance: CYCLOPHOSPHAMIDE
     Indication: Product used for unknown indication
     Dosage: UNK
     Route: 065

REACTIONS (7)
  - Cystitis haemorrhagic [Fatal]
  - Cardiotoxicity [Fatal]
  - Pericardial effusion [Fatal]
  - Cardiac failure [Fatal]
  - Cardiac tamponade [Fatal]
  - Tachycardia [Fatal]
  - Hypokinesia [Fatal]
